FAERS Safety Report 4907739-X (Version None)
Quarter: 2006Q1

REPORT INFORMATION
  Report Type: 
  Country: None (occurrence: None)
  Receive Date: 20060208
  Receipt Date: 20060208
  Transmission Date: 20060701
  Serious: Yes (Hospitalization)
  Sender: FDA-Public Use
  Company Number: None

PATIENT
  Age: 66 Year
  Sex: Male

DRUGS (5)
  1. FUROSEMIDE [Suspect]
     Indication: HYPERTENSION
     Dosage: 20MG QD
     Dates: start: 20050801
  2. LISINOPRIL [Suspect]
     Indication: HYPERTENSION
     Dosage: 10MG QD
     Dates: start: 20010101
  3. IBUPROFEN [Suspect]
     Indication: PAIN
     Dosage: 800MG Q8H
     Dates: start: 19960201
  4. VITAMIN B-12 [Concomitant]
  5. GLYBURIDE [Concomitant]

REACTIONS (3)
  - ASTHENIA [None]
  - HYPOTENSION [None]
  - RENAL FAILURE ACUTE [None]
